FAERS Safety Report 7657182-8 (Version None)
Quarter: 2011Q3

REPORT INFORMATION
  Report Type: 
  Country: None (occurrence: None)
  Receive Date: 20110804
  Receipt Date: 20101206
  Transmission Date: 20111222
  Serious: Yes (Death)
  Sender: FDA-Public Use
  Company Number: PE-ASTRAZENECA-2011SE45123

PATIENT
  Age: 82 Year
  Sex: Male

DRUGS (1)
  1. BUDESONIDE [Suspect]
     Indication: ASTHMA
     Dosage: 160/4.5  MCG TWO TIMES DAILY
     Route: 055
     Dates: start: 20100424

REACTIONS (1)
  - DEATH [None]
